FAERS Safety Report 25978017 (Version 1)
Quarter: 2025Q4

REPORT INFORMATION
  Report Type: Spontaneous
  Country: GB (occurrence: GB)
  Receive Date: 20251030
  Receipt Date: 20251030
  Transmission Date: 20260118
  Serious: Yes (Other)
  Sender: TEVA
  Company Number: GB-MHRA-EMIS-1490-5f82004e-e76d-478a-9927-79ca1f4f52c6

PATIENT
  Age: 77 Year
  Sex: Female
  Weight: 45 kg

DRUGS (1)
  1. ALENDRONIC ACID [Suspect]
     Active Substance: ALENDRONIC ACID
     Indication: Osteoporosis
     Dosage: ON THE SAME DAY (FOR FIVE YEARS TO STOP DEC 2028)
     Route: 065
     Dates: start: 20250724, end: 20251017

REACTIONS (3)
  - Oral mucosal blistering [Recovered/Resolved]
  - Mouth injury [Recovering/Resolving]
  - Mouth ulceration [Recovered/Resolved]
